FAERS Safety Report 8166825-4 (Version None)
Quarter: 2012Q1

REPORT INFORMATION
  Report Type: 
  Country: None (occurrence: None)
  Receive Date: 20120227
  Receipt Date: 20110223
  Transmission Date: 20120608
  Serious: No
  Sender: FDA-Public Use
  Company Number: US-MYLANLABS-2011S1003615

PATIENT
  Sex: Female

DRUGS (9)
  1. LEVOTHYROXINE SODIUM [Concomitant]
  2. TRAZODONE HCL [Concomitant]
  3. URSODIOL [Suspect]
     Route: 048
     Dates: start: 20110101
  4. LISINOPRIL [Concomitant]
  5. BUPROPION HCL [Concomitant]
  6. DILTIAZEM HCL [Concomitant]
  7. BUMETANIDE [Concomitant]
  8. ROPINIROLE [Concomitant]
  9. URSODIOL [Suspect]
     Route: 048
     Dates: start: 20110101

REACTIONS (2)
  - DRUG INEFFECTIVE [None]
  - LIVER FUNCTION TEST ABNORMAL [None]
